FAERS Safety Report 17646065 (Version 3)
Quarter: 2020Q2

REPORT INFORMATION
  Report Type: Spontaneous
  Country: US (occurrence: US)
  Receive Date: 20200408
  Receipt Date: 20200514
  Transmission Date: 20200713
  Serious: No
  Sender: FDA-Public Use
  Company Number: US-SA-2020SA088554

PATIENT
  Age: 42 Year
  Sex: Female

DRUGS (1)
  1. DUPIXENT [Suspect]
     Active Substance: DUPILUMAB
     Indication: ASTHMA
     Dosage: 300 MG, OTHER
     Route: 058
     Dates: start: 201906

REACTIONS (4)
  - Weight increased [Unknown]
  - Dyspnoea [Unknown]
  - Anxiety [Unknown]
  - Injection site pain [Unknown]
